FAERS Safety Report 12093728 (Version 1)
Quarter: 2016Q1

REPORT INFORMATION
  Report Type: Spontaneous
  Country: US (occurrence: None)
  Receive Date: 20160218
  Receipt Date: 20160218
  Transmission Date: 20160526
  Serious: Yes (Other)
  Sender: FDA-Public Use
  Company Number: None

PATIENT
  Age: 79 Year
  Sex: Female

DRUGS (11)
  1. PANTOPRAZOLE SODIUM. [Concomitant]
     Active Substance: PANTOPRAZOLE SODIUM
  2. PREDNISONE. [Concomitant]
     Active Substance: PREDNISONE
  3. CRANBERRY. [Concomitant]
     Active Substance: CRANBERRY
  4. METHOTREXATE [Concomitant]
     Active Substance: METHOTREXATE
  5. LEVOCETIRIZINE DIHYDROCHL [Concomitant]
  6. BETANAPHTHOL [Concomitant]
  7. CALCIUM [Concomitant]
     Active Substance: CALCIUM
  8. TRAMADOL. [Concomitant]
     Active Substance: TRAMADOL
  9. XELJANZ [Suspect]
     Active Substance: TOFACITINIB CITRATE
     Indication: RHEUMATOID ARTHRITIS
     Dosage: TAKE ONE TABLET BID ORAL
     Route: 048
  10. LEVOTHYROXINE SODIUM. [Concomitant]
     Active Substance: LEVOTHYROXINE SODIUM
  11. FOLIC ACID. [Concomitant]
     Active Substance: FOLIC ACID

REACTIONS (1)
  - Nasopharyngitis [None]

NARRATIVE: CASE EVENT DATE: 20160217
